FAERS Safety Report 9398445 (Version 1)
Quarter: 2013Q3

REPORT INFORMATION
  Report Type: Spontaneous
  Country: US (occurrence: US)
  Receive Date: 20130712
  Receipt Date: 20130712
  Transmission Date: 20140515
  Serious: No
  Sender: FDA-Public Use
  Company Number: US-GLAXOSMITHKLINE-A1022676A

PATIENT
  Age: 76 Year
  Sex: Female

DRUGS (6)
  1. FLOVENT [Suspect]
     Indication: ASTHMA
     Dosage: 1PUFF TWICE PER DAY
     Route: 055
     Dates: start: 201205
  2. BABY ASPIRIN [Concomitant]
  3. XANAX [Concomitant]
  4. ZOCOR [Concomitant]
  5. AMITRIPTYLINE [Concomitant]
  6. NEXIUM [Concomitant]

REACTIONS (6)
  - Eye disorder [Not Recovered/Not Resolved]
  - Eye irritation [Not Recovered/Not Resolved]
  - Lacrimation increased [Not Recovered/Not Resolved]
  - Increased tendency to bruise [Not Recovered/Not Resolved]
  - Weight increased [Not Recovered/Not Resolved]
  - Dysphonia [Not Recovered/Not Resolved]
